FAERS Safety Report 14942467 (Version 2)
Quarter: 2018Q2

REPORT INFORMATION
  Report Type: Spontaneous
  Country: US (occurrence: US)
  Receive Date: 20180528
  Receipt Date: 20180619
  Transmission Date: 20180711
  Serious: No
  Sender: FDA-Public Use
  Company Number: US-009507513-1805USA005426

PATIENT
  Age: 24 Year
  Sex: Female
  Weight: 141.4 kg

DRUGS (2)
  1. NEXPLANON [Suspect]
     Active Substance: ETONOGESTREL
     Dosage: 68 MG, ONCE EVERY 3 YEARS, IN RIGHT ARM
     Route: 059
     Dates: start: 20180507
  2. NEXPLANON [Suspect]
     Active Substance: ETONOGESTREL
     Indication: CONTRACEPTION
     Dosage: 68 MG, ONCE EVERY 3 YEARS, IN LEFT ARM
     Route: 059
     Dates: start: 20170705, end: 20180507

REACTIONS (2)
  - Device breakage [Recovered/Resolved]
  - No adverse event [Unknown]

NARRATIVE: CASE EVENT DATE: 20180501
